FAERS Safety Report 6525589-8 (Version None)
Quarter: 2010Q1

REPORT INFORMATION
  Report Type: 
  Country: None (occurrence: None)
  Receive Date: 20100104
  Receipt Date: 20091222
  Transmission Date: 20100710
  Serious: Yes (Other)
  Sender: FDA-Public Use
  Company Number: US-PFIZER INC-2009315679

PATIENT
  Sex: Female
  Weight: 90.703 kg

DRUGS (15)
  1. XALATAN [Suspect]
     Indication: GLAUCOMA
     Dosage: 1 DROP IN EACH EYE ONCE A DAY
  2. SYNTHROID [Concomitant]
     Dosage: 150 MG, 1X/DAY
  3. PRILOSEC [Concomitant]
     Dosage: 20 MG, UNK
  4. ATENOLOL [Concomitant]
     Dosage: 100 MG, 1X/DAY
     Route: 048
  5. LEXAPRO [Concomitant]
     Dosage: 20 MG, 1X/DAY
     Route: 048
  6. GABAPENTIN [Concomitant]
     Dosage: 1200 MG, 3X/DAY
     Route: 048
  7. SIMVASTATIN [Concomitant]
     Dosage: 40 MG, 1X/DAY
     Route: 048
  8. CLONAZEPAM [Concomitant]
     Dosage: 0.5 MG, 4X/DAY
     Route: 048
  9. TRAZODONE [Concomitant]
     Dosage: 100 MG, AS NEEDED
     Route: 048
  10. LOMOTIL [Concomitant]
     Dosage: 2.5 MG, AS NEEDED
     Route: 048
  11. FUROSEMIDE [Concomitant]
     Dosage: 40 MG, 1X/DAY
     Route: 048
  12. POTASSIUM CHLORIDE [Concomitant]
     Dosage: 20 MEQ, 1X/DAY
     Route: 048
  13. METAMUCIL-2 [Concomitant]
     Dosage: UNK
     Route: 048
  14. DURAGESIC-100 [Concomitant]
     Dosage: UNK
     Route: 062
  15. COZAAR [Concomitant]
     Dosage: 100 MG, 1X/DAY

REACTIONS (2)
  - CORNEAL ABRASION [None]
  - INTRAOCULAR PRESSURE INCREASED [None]
